FAERS Safety Report 10242645 (Version 1)
Quarter: 2014Q2

REPORT INFORMATION
  Report Type: Spontaneous
  Country: US (occurrence: US)
  Receive Date: 20140617
  Receipt Date: 20140617
  Transmission Date: 20141212
  Serious: Yes (Other)
  Sender: FDA-Public Use
  Company Number: US-BAXTER-2014BAX030031

PATIENT
  Age: 32 Year
  Sex: Male

DRUGS (7)
  1. CEFTRIAXONE INJECTION, USP (IN DEXTROSE) [Suspect]
     Indication: ANTIBIOTIC THERAPY
     Route: 065
  2. CEFEPIME INJECTION [Suspect]
     Indication: ANTIBIOTIC THERAPY
     Route: 065
  3. VANCOMYCIN INJECTION, USP [Suspect]
     Indication: ANTIBIOTIC THERAPY
     Route: 065
  4. AZATHIOPRINE [Concomitant]
     Indication: CROHN^S DISEASE
     Route: 065
  5. PREDNISONE [Concomitant]
     Indication: CROHN^S DISEASE
     Route: 065
  6. PREDNISONE [Concomitant]
     Route: 065
  7. PREDNISONE [Concomitant]
     Route: 065

REACTIONS (2)
  - Drug ineffective [Unknown]
  - Acute febrile neutrophilic dermatosis [Recovered/Resolved]
